FAERS Safety Report 7954528-8 (Version None)
Quarter: 2011Q4

REPORT INFORMATION
  Report Type: 
  Country: None (occurrence: None)
  Receive Date: 20111202
  Receipt Date: 20111128
  Transmission Date: 20120403
  Serious: Yes (Life-Threatening, Hospitalization, Other)
  Sender: FDA-Public Use
  Company Number: PHHY2010GB18691

PATIENT
  Sex: Male

DRUGS (9)
  1. RASAGILINE [Concomitant]
     Dosage: 1 MG, UNK
     Dates: start: 20100224, end: 20100226
  2. ATENOLOL [Concomitant]
     Dosage: 25 MG, QD
     Dates: start: 20100226
  3. INDAPAMIDE [Concomitant]
     Dosage: 1.5 MG, LONG TERM MEDICATION
     Dates: start: 20100226
  4. STELAZINE [Interacting]
     Indication: SCHIZOPHRENIA
     Route: 048
     Dates: end: 20100226
  5. ENTACAPONE [Suspect]
     Indication: PARKINSON'S DISEASE
     Dosage: 200 MG, QID
     Dates: start: 20100226, end: 20100227
  6. SINEMET [Concomitant]
     Dosage: 25100 MG, QDS
  7. CRESTOR [Concomitant]
     Dosage: 10 MG, LONG TERM MEDICATION
     Dates: start: 20100226
  8. ANTIPSYCHOTICS [Concomitant]
  9. AKINETON [Concomitant]
     Dosage: 2 MG, QD
     Dates: start: 20100226

REACTIONS (5)
  - SEDATION [None]
  - NEUROLEPTIC MALIGNANT SYNDROME [None]
  - SCHIZOPHRENIA [None]
  - BLOOD CREATINE PHOSPHOKINASE INCREASED [None]
  - DRUG INTERACTION [None]
